FAERS Safety Report 4924507-3 (Version None)
Quarter: 2006Q1

REPORT INFORMATION
  Report Type: 
  Country: None (occurrence: None)
  Receive Date: 20060222
  Receipt Date: 20060206
  Transmission Date: 20060701
  Serious: Yes (Death)
  Sender: FDA-Public Use
  Company Number: 2006000289

PATIENT
  Age: 57 Year
  Sex: Female

DRUGS (8)
  1. TARCEVA [Suspect]
     Indication: BRONCHIAL CARCINOMA
     Dosage: 100 MG (QD), ORAL
     Route: 048
     Dates: start: 20050815, end: 20051110
  2. TARCEVA [Suspect]
     Indication: LUNG NEOPLASM MALIGNANT
     Dosage: 100 MG (QD), ORAL
     Route: 048
     Dates: start: 20050815, end: 20051110
  3. FENTANYL [Suspect]
     Dosage: 25 MCG
     Dates: end: 20051110
  4. DEXAMETHASONE [Suspect]
     Dates: end: 20051110
  5. GABAPENTIN [Suspect]
     Dates: end: 20051110
  6. OMEPRAZOLE [Suspect]
     Dates: end: 20051110
  7. ZOMETA [Suspect]
     Dosage: 4 MG
     Dates: end: 20051110
  8. PAROXETINE HCL [Suspect]
     Dosage: 20 MG
     Dates: end: 20051105

REACTIONS (1)
  - SUDDEN DEATH [None]
